FAERS Safety Report 8798400 (Version 2)
Quarter: 2012Q4

REPORT INFORMATION
  Report Type: 
  Country: CN (occurrence: CN)
  Receive Date: 20120920
  Receipt Date: 20121127
  Transmission Date: 20130627
  Serious: Yes (Other)
  Sender: FDA-Public Use
  Company Number: CN-BAYER-2012-096626

PATIENT
  Age: 48 Year
  Sex: Female

DRUGS (1)
  1. ULTRAVIST [Suspect]
     Indication: CT SCAN
     Dosage: UNK
     Dates: start: 20120914, end: 20120914

REACTIONS (6)
  - Coma [Recovered/Resolved]
  - Blood pressure immeasurable [Recovered/Resolved]
  - Pulse absent [Recovered/Resolved]
  - Pruritus generalised [Recovered/Resolved]
  - Erythema [None]
  - Swelling face [None]
